FAERS Safety Report 8145747-9 (Version None)
Quarter: 2012Q1

REPORT INFORMATION
  Report Type: 
  Country: None (occurrence: None)
  Receive Date: 20120217
  Receipt Date: 20110425
  Transmission Date: 20120608
  Serious: No
  Sender: FDA-Public Use
  Company Number: US-ABBOTT-11P-163-0721505-00

PATIENT
  Sex: Female
  Weight: 78.996 kg

DRUGS (5)
  1. POTASSIUM CHLORIDE [Concomitant]
     Indication: PRODUCT USED FOR UNKNOWN INDICATION
  2. VITAMIN D [Concomitant]
     Indication: PRODUCT USED FOR UNKNOWN INDICATION
  3. GLUCOSAMINE [Concomitant]
     Indication: PRODUCT USED FOR UNKNOWN INDICATION
  4. SIMCOR [Suspect]
     Indication: TOTAL CHOLESTEROL/HDL RATIO ABNORMAL
     Dosage: 500MG/20MG AT BEDTIME
     Dates: start: 20110401
  5. UNKNOWN MEDICATION [Concomitant]
     Indication: BLOOD PRESSURE

REACTIONS (1)
  - DIZZINESS [None]
